FAERS Safety Report 9721422 (Version 2)
Quarter: 2014Q1

REPORT INFORMATION
  Report Type: Spontaneous
  Country: JP (occurrence: JP)
  Receive Date: 20131129
  Receipt Date: 20140210
  Transmission Date: 20141002
  Serious: Yes (Hospitalization, Other)
  Sender: FDA-Public Use
  Company Number: JP-UCBSA-104483

PATIENT
  Age: 65 Year
  Sex: Female

DRUGS (9)
  1. NEUPRO [Suspect]
     Indication: PARKINSON^S DISEASE
     Dosage: STRENGTH: 9MG TOPICAL ODT,
     Route: 061
     Dates: start: 20130904, end: 20131009
  2. NEUPRO [Suspect]
     Indication: PARKINSON^S DISEASE
     Dosage: TOPICAL ODT; DAILY DOSE: 2MG/24H
     Route: 061
     Dates: start: 20130821, end: 20130903
  3. DIPYRIDAMOLE [Concomitant]
     Dosage: DAILY DOSE: 50 MG
     Dates: start: 20080313
  4. FLUNITRAZEPAM [Concomitant]
     Dosage: DAILY DOSE: 2 MG
     Dates: start: 20091028
  5. CLONAZEPAM [Concomitant]
     Dosage: DAILY DOSE: 3 MG
     Dates: start: 20100414
  6. ROPINIROLE HYDROCHLORIDE [Concomitant]
     Dosage: DAILY DOSE: 3 MG
     Dates: start: 20100728
  7. SHAKUYAKUKANZOTO [Concomitant]
     Dosage: DAILY DOSE: 5 G
     Dates: start: 20110601
  8. ZOLPIDEM TARTRATE [Concomitant]
     Dosage: DAILY DOSE: 10 MG
     Dates: start: 20111104
  9. ETIZOLAM [Concomitant]
     Dosage: DAILY DOSE: 2 MG
     Dates: start: 20121220

REACTIONS (2)
  - Rhabdomyolysis [Recovered/Resolved]
  - Drug-induced liver injury [Recovered/Resolved]
